FAERS Safety Report 4827068-2 (Version None)
Quarter: 2005Q4

REPORT INFORMATION
  Report Type: 
  Country: None (occurrence: None)
  Receive Date: 20051014
  Receipt Date: 20050722
  Transmission Date: 20060501
  Serious: No
  Sender: FDA-Public Use
  Company Number: 2005SP000406

PATIENT
  Age: 71 Year
  Sex: Female
  Weight: 67.586 kg

DRUGS (1)
  1. LUNESTA [Suspect]
     Indication: INSOMNIA
     Dosage: 3 MG; 1X; ORAL
     Route: 048

REACTIONS (2)
  - DYSGEUSIA [None]
  - NAUSEA [None]
